FAERS Safety Report 6071170-7 (Version None)
Quarter: 2009Q1

REPORT INFORMATION
  Report Type: 
  Country: None (occurrence: None)
  Receive Date: 20090209
  Receipt Date: 20090204
  Transmission Date: 20090719
  Serious: No
  Sender: FDA-Public Use
  Company Number: US-B.I. PHARMACEUTICALS,INC./RIDGEFIELD-2008-BP-16552BP

PATIENT
  Sex: Female

DRUGS (15)
  1. SPIRIVA [Suspect]
     Indication: CHRONIC OBSTRUCTIVE PULMONARY DISEASE
     Dosage: 18MCG
     Route: 055
     Dates: start: 20080201
  2. VERAPAMIL [Concomitant]
     Indication: HYPERTENSION
  3. DIOVAN [Concomitant]
     Indication: HYPERTENSION
  4. XALATAN [Concomitant]
     Indication: GLAUCOMA
  5. ASPIRIN [Concomitant]
  6. FUROSOMIDE [Concomitant]
  7. LIPITOR [Concomitant]
  8. FLOVENT [Concomitant]
  9. XOPENEX [Concomitant]
  10. CLARITIN [Concomitant]
  11. SINGULAIR [Concomitant]
  12. XANAX [Concomitant]
  13. PREDNISONE [Concomitant]
  14. FLUTICASONE PROPIONATE (NASAL) [Concomitant]
  15. NASACORT [Concomitant]

REACTIONS (5)
  - GLAUCOMA [None]
  - GLOSSITIS [None]
  - SWOLLEN TONGUE [None]
  - TONGUE COATED [None]
  - TONGUE DRY [None]
